FAERS Safety Report 7271828-8 (Version None)
Quarter: 2011Q1

REPORT INFORMATION
  Report Type: 
  Country: None (occurrence: None)
  Receive Date: 20110203
  Receipt Date: 20110127
  Transmission Date: 20110831
  Serious: Yes (Other)
  Sender: FDA-Public Use
  Company Number: US-PFIZER INC-US-WYE-H14825210

PATIENT
  Sex: Female
  Weight: 49 kg

DRUGS (5)
  1. PROVERA [Suspect]
     Indication: HOT FLUSH
     Dosage: UNK
     Route: 048
     Dates: end: 19970101
  2. EFFEXOR [Suspect]
     Indication: PRODUCT USED FOR UNKNOWN INDICATION
     Route: 048
  3. XANAX [Suspect]
     Indication: PRODUCT USED FOR UNKNOWN INDICATION
     Route: 065
  4. PREMARIN [Suspect]
     Indication: HOT FLUSH
     Dosage: UNK
     Route: 048
     Dates: end: 19970101
  5. NEURONTIN [Suspect]
     Indication: PRODUCT USED FOR UNKNOWN INDICATION
     Route: 065

REACTIONS (7)
  - BREAST CANCER METASTATIC [None]
  - WEIGHT INCREASED [None]
  - BLOOD URINE PRESENT [None]
  - RIB FRACTURE [None]
  - BLADDER PROLAPSE [None]
  - RENAL CYST [None]
  - UTERINE PROLAPSE [None]
